FAERS Safety Report 5726137-2 (Version None)
Quarter: 2008Q2

REPORT INFORMATION
  Report Type: 
  Country: None (occurrence: None)
  Receive Date: 20080502
  Receipt Date: 20080502
  Transmission Date: 20081010
  Serious: Yes (Death)
  Sender: FDA-Public Use
  Company Number: None

PATIENT
  Sex: Female

DRUGS (1)
  1. HEPARIN [Suspect]
     Dates: start: 20031205, end: 20031227

REACTIONS (11)
  - ANGER [None]
  - CONFUSIONAL STATE [None]
  - DYSPNOEA [None]
  - HEPARIN-INDUCED THROMBOCYTOPENIA [None]
  - HYPERHIDROSIS [None]
  - INFECTION [None]
  - OEDEMA PERIPHERAL [None]
  - RENAL FAILURE [None]
  - SKIN DISCOLOURATION [None]
  - SWELLING FACE [None]
  - THERAPEUTIC PRODUCT INEFFECTIVE [None]
